FAERS Safety Report 7574866-0 (Version None)
Quarter: 2011Q2

REPORT INFORMATION
  Report Type: 
  Country: None (occurrence: None)
  Receive Date: 20110627
  Receipt Date: 20110505
  Transmission Date: 20111010
  Serious: No
  Sender: FDA-Public Use
  Company Number: US-BAYER-2011-040154

PATIENT
  Age: 75 Year
  Sex: Male
  Weight: 68 kg

DRUGS (7)
  1. KETOCONAZOLE [Concomitant]
  2. CALCIUM CARBONATE [Concomitant]
  3. LUPRON [Suspect]
  4. ALEVE (CAPLET) [Suspect]
     Indication: ARTHRITIS
     Dosage: 2 DF, TID
     Route: 048
     Dates: start: 20110428
  5. HYDROCORTISONE [Concomitant]
  6. ZOMETA [Suspect]
  7. SELENIUM [SELENIUM] [Concomitant]

REACTIONS (1)
  - NO ADVERSE EVENT [None]
